FAERS Safety Report 23696640 (Version 1)
Quarter: 2024Q2

REPORT INFORMATION
  Report Type: Spontaneous
  Country: US (occurrence: None)
  Receive Date: 20240401
  Receipt Date: 20240401
  Transmission Date: 20240716
  Serious: Yes (Hospitalization)
  Sender: FDA-Public Use
  Company Number: None

PATIENT
  Age: 82 Year
  Sex: Male
  Weight: 56.2 kg

DRUGS (1)
  1. ERLEADA [Suspect]
     Active Substance: APALUTAMIDE
     Indication: Prostate cancer
     Dosage: 240 MG DAILY BUCAL
     Route: 002
     Dates: start: 20231011, end: 20240315

REACTIONS (5)
  - Oedema peripheral [None]
  - Oedema [None]
  - Muscular weakness [None]
  - Balance disorder [None]
  - Therapy cessation [None]

NARRATIVE: CASE EVENT DATE: 20240315
